FAERS Safety Report 15491036 (Version 1)
Quarter: 2018Q4

REPORT INFORMATION
  Report Type: Spontaneous
  Country: US (occurrence: US)
  Receive Date: 20181012
  Receipt Date: 20181012
  Transmission Date: 20190205
  Serious: No
  Sender: FDA-Public Use
  Company Number: US-BION-007122

PATIENT
  Sex: Female

DRUGS (1)
  1. PROGESTERONE BION [Suspect]
     Active Substance: PROGESTERONE
     Indication: HAEMORRHAGE

REACTIONS (3)
  - Incorrect route of product administration [Not Recovered/Not Resolved]
  - Product colour issue [Unknown]
  - Product use in unapproved indication [Not Recovered/Not Resolved]
